FAERS Safety Report 25136183 (Version 1)
Quarter: 2025Q1

REPORT INFORMATION
  Report Type: Spontaneous
  Country: CN (occurrence: CN)
  Receive Date: 20250328
  Receipt Date: 20250328
  Transmission Date: 20250408
  Serious: Yes (Hospitalization)
  Sender: BAYER HEALTHCARE PHARMACEUTICALS INC.
  Company Number: CN-BAYER-2025A038164

PATIENT
  Age: 30 Year
  Sex: Female
  Weight: 49 kg

DRUGS (4)
  1. STIVARGA [Suspect]
     Active Substance: REGORAFENIB MONOHYDRATE
     Indication: Anal cancer
     Dosage: 120 MG, QD
     Route: 048
     Dates: start: 20250107, end: 20250111
  2. STIVARGA [Suspect]
     Active Substance: REGORAFENIB MONOHYDRATE
     Indication: Chemotherapy
  3. SINTILIMAB [Suspect]
     Active Substance: SINTILIMAB
     Indication: Anal cancer
     Dosage: 200 MG, QD
     Route: 041
     Dates: start: 20250107, end: 20250107
  4. SODIUM CHLORIDE [Concomitant]
     Active Substance: SODIUM CHLORIDE
     Indication: Vehicle solution use
     Dosage: 100 ML, QD
     Route: 041
     Dates: start: 20250107, end: 20250107

REACTIONS (3)
  - Myelosuppression [Recovered/Resolved]
  - Product prescribing issue [None]
  - Product use in unapproved indication [None]

NARRATIVE: CASE EVENT DATE: 20250107
